FAERS Safety Report 5147795-X (Version None)
Quarter: 2006Q4

REPORT INFORMATION
  Report Type: 
  Country: None (occurrence: None)
  Receive Date: 20061106
  Receipt Date: 20061024
  Transmission Date: 20070319
  Serious: Yes (Life-Threatening)
  Sender: FDA-Public Use
  Company Number: CHNY2006GB02914

PATIENT
  Age: 64 Year
  Sex: Male
  Weight: 90 kg

DRUGS (9)
  1. IBUPROFEN [Suspect]
     Indication: NECK PAIN
     Dosage: TOPICAL
     Route: 061
     Dates: start: 20051201
  2. METFORMIN [Suspect]
     Dosage: 1 G, BID, ORAL
     Route: 048
     Dates: start: 20051201
  3. ASPIRIN (ACETYLSACICYLIC ACID) [Concomitant]
  4. ATORVASTATIN CALCIUM [Concomitant]
  5. DILTIAZEM [Concomitant]
  6. ENALAPRIL MALEATE [Concomitant]
  7. ISMN (ISOSORBRIDE MONONITRATE) [Concomitant]
  8. NICORANDIL (NICORANDIL) [Concomitant]
  9. ROSIGLITAZONE [Concomitant]

REACTIONS (7)
  - DIALYSIS [None]
  - DIZZINESS [None]
  - ELECTROMECHANICAL DISSOCIATION [None]
  - HYPERKALAEMIA [None]
  - MALAISE [None]
  - RENAL FAILURE ACUTE [None]
  - RENAL IMPAIRMENT [None]
